FAERS Safety Report 15277660 (Version 1)
Quarter: 2018Q3

REPORT INFORMATION
  Report Type: Report from Study
  Country: US (occurrence: US)
  Receive Date: 20180814
  Receipt Date: 20180814
  Transmission Date: 20181010
  Serious: Yes (Other)
  Sender: FDA-Public Use
  Company Number: US-ROCHE-2169931

PATIENT

DRUGS (7)
  1. DIAZEPAM. [Suspect]
     Active Substance: DIAZEPAM
     Indication: INDUCTION OF ANAESTHESIA
     Dosage: PART 1. 0.2 PERCENT SOLUTION OF DIAZEPAM IN 5 PERCENT DEXTROSE
     Route: 042
  2. METHOHEXITONE [Concomitant]
     Route: 065
  3. HALOPERIDOL. [Concomitant]
     Active Substance: HALOPERIDOL
     Dosage: 2?4 MG
     Route: 065
  4. DEXTROSE. [Concomitant]
     Active Substance: DEXTROSE
     Route: 065
  5. SCOPOLAMINE [Concomitant]
     Active Substance: SCOPOLAMINE
     Route: 065
  6. DIAZEPAM. [Suspect]
     Active Substance: DIAZEPAM
     Dosage: 0.16?0.32 MG/KG IN PART 3
     Route: 042
  7. DIAZEPAM. [Suspect]
     Active Substance: DIAZEPAM
     Dosage: PART 2
     Route: 042

REACTIONS (5)
  - Injection site pain [Unknown]
  - Dysarthria [Unknown]
  - Blood pressure decreased [Unknown]
  - Loss of consciousness [Unknown]
  - Apnoea [Unknown]
